FAERS Safety Report 6011915-5 (Version None)
Quarter: 2008Q4

REPORT INFORMATION
  Report Type: 
  Country: None (occurrence: None)
  Receive Date: 20081218
  Receipt Date: 20081031
  Transmission Date: 20090506
  Serious: No
  Sender: FDA-Public Use
  Company Number: US-ASTRAZENECA-2008UW21499

PATIENT
  Age: 62 Year
  Sex: Male
  Weight: 78 kg

DRUGS (4)
  1. CRESTOR [Suspect]
     Indication: BLOOD CHOLESTEROL
     Route: 048
     Dates: start: 20080828
  2. LEXAPRO [Concomitant]
     Indication: DEPRESSION
     Dosage: 10 MG
  3. NORVASC [Concomitant]
     Indication: BLOOD PRESSURE INCREASED
     Dosage: 5 MG
  4. ASPIRIN [Concomitant]
     Dosage: 81 MG

REACTIONS (3)
  - BLOOD CREATINE PHOSPHOKINASE NORMAL [None]
  - MYALGIA [None]
  - PAIN IN EXTREMITY [None]
